FAERS Safety Report 20951919 (Version 1)
Quarter: 2022Q2

REPORT INFORMATION
  Report Type: Spontaneous
  Country: US (occurrence: None)
  Receive Date: 20220613
  Receipt Date: 20220613
  Transmission Date: 20220721
  Serious: No
  Sender: FDA-Public Use
  Company Number: None

PATIENT
  Sex: Female

DRUGS (1)
  1. STELARA [Suspect]
     Active Substance: USTEKINUMAB
     Indication: Colitis ulcerative
     Dosage: 90MG EVERY 8 WEEKS SUBQ?
     Route: 058
     Dates: start: 20220215, end: 20220610

REACTIONS (4)
  - Treatment failure [None]
  - Rectal haemorrhage [None]
  - Adverse drug reaction [None]
  - Groin pain [None]
